FAERS Safety Report 10258439 (Version 1)
Quarter: 2014Q2

REPORT INFORMATION
  Report Type: Spontaneous
  Country: ES (occurrence: ES)
  Receive Date: 20140625
  Receipt Date: 20140625
  Transmission Date: 20141212
  Serious: Yes (Hospitalization)
  Sender: FDA-Public Use
  Company Number: ES-SA-2014SA078650

PATIENT
  Age: 80 Year
  Sex: Female

DRUGS (7)
  1. SEGURIL [Suspect]
     Indication: PRODUCT USED FOR UNKNOWN INDICATION
     Route: 065
     Dates: start: 2012
  2. DIGOXIN [Interacting]
     Indication: PRODUCT USED FOR UNKNOWN INDICATION
     Route: 048
     Dates: start: 2009
  3. BESITRAN [Concomitant]
  4. NORVAS [Concomitant]
  5. SINTROM [Concomitant]
  6. PARAPRES [Concomitant]
  7. UNIKET [Concomitant]

REACTIONS (4)
  - Malaise [Recovered/Resolved]
  - Cardioactive drug level increased [Recovered/Resolved]
  - Nausea [Recovered/Resolved]
  - Drug interaction [Unknown]
